FAERS Safety Report 20037466 (Version 1)
Quarter: 2021Q4

REPORT INFORMATION
  Report Type: Spontaneous
  Country: FR (occurrence: FR)
  Receive Date: 20211105
  Receipt Date: 20211105
  Transmission Date: 20220304
  Serious: Yes (Life-Threatening, Other)
  Sender: FDA-Public Use
  Company Number: FR-MYLANLABS-2021M1073978

PATIENT
  Age: 79 Year
  Sex: Female
  Weight: 85 kg

DRUGS (2)
  1. HYDROCHLOROTHIAZIDE\IRBESARTAN [Suspect]
     Active Substance: HYDROCHLOROTHIAZIDE\IRBESARTAN
     Indication: Hypertension
     Dosage: UNK
  2. HYDROCHLOROTHIAZIDE\IRBESARTAN [Suspect]
     Active Substance: HYDROCHLOROTHIAZIDE\IRBESARTAN
     Dosage: 300 MG/25 MG QD
     Route: 048
     Dates: start: 20210928, end: 20211013

REACTIONS (10)
  - Loss of consciousness [Recovered/Resolved]
  - Blood pressure fluctuation [Recovered/Resolved]
  - Malaise [Recovered/Resolved]
  - Presyncope [Recovered/Resolved]
  - Dizziness [Recovered/Resolved]
  - Hot flush [Recovered/Resolved]
  - Vision blurred [Recovered/Resolved]
  - Fall [Recovered/Resolved]
  - Angioedema [Recovered/Resolved]
  - Product substitution issue [Unknown]

NARRATIVE: CASE EVENT DATE: 20210928
